FAERS Safety Report 8183181-6 (Version None)
Quarter: 2012Q1

REPORT INFORMATION
  Report Type: 
  Country: None (occurrence: None)
  Receive Date: 20120305
  Receipt Date: 20120227
  Transmission Date: 20120608
  Serious: No
  Sender: FDA-Public Use
  Company Number: US-BAYER-2012-019739

PATIENT
  Sex: Female

DRUGS (2)
  1. ST. JOHN'S WORT [Concomitant]
  2. MIRENA [Suspect]
     Dosage: 20 ?G/D, CONT
     Route: 015

REACTIONS (2)
  - STRESS [None]
  - DEPRESSED MOOD [None]
